FAERS Safety Report 16190092 (Version 1)
Quarter: 2019Q2

REPORT INFORMATION
  Report Type: Spontaneous
  Country: PL (occurrence: PL)
  Receive Date: 20190412
  Receipt Date: 20190412
  Transmission Date: 20190711
  Serious: Yes (Other)
  Sender: FDA-Public Use
  Company Number: PL-009507513-1904POL003303

PATIENT
  Age: 78 Year
  Sex: Female

DRUGS (8)
  1. ACCUPRO [Concomitant]
     Active Substance: QUINAPRIL HYDROCHLORIDE
     Dosage: 20 MG IN THE MORNING
  2. GABAPENTIN. [Concomitant]
     Active Substance: GABAPENTIN
     Dosage: 300 MG IN THE MORNING
  3. AMLOZEK [Concomitant]
     Active Substance: AMLODIPINE BESYLATE
     Dosage: 10 MG IN THE MORNING
  4. BISORATIO [Concomitant]
     Dosage: 5 MG IN THE MORNING
  5. LANZUL S [Concomitant]
     Dosage: UNK
  6. MILURIT [Concomitant]
     Active Substance: ALLOPURINOL
     Dosage: 100 MG IN THE MORNING
  7. DORETA [Concomitant]
     Active Substance: ACETAMINOPHEN\TRAMADOL HYDROCHLORIDE
     Dosage: AD HOC
  8. ZEPATIER [Suspect]
     Active Substance: ELBASVIR\GRAZOPREVIR
     Dosage: UNK
     Route: 048
     Dates: start: 20181023, end: 20190115

REACTIONS (4)
  - Ischaemic stroke [Recovering/Resolving]
  - Quadriplegia [Recovering/Resolving]
  - Clostridium difficile infection [Unknown]
  - Upper respiratory tract infection [Unknown]

NARRATIVE: CASE EVENT DATE: 20190301
